FAERS Safety Report 20873154 (Version 2)
Quarter: 2022Q3

REPORT INFORMATION
  Report Type: Spontaneous
  Country: AU (occurrence: AU)
  Receive Date: 20220525
  Receipt Date: 20220722
  Transmission Date: 20221027
  Serious: Yes (Other)
  Sender: FDA-Public Use
  Company Number: AU-PFIZER INC-2019533713

PATIENT
  Age: 46 Year
  Sex: Female
  Weight: 80.6 kg

DRUGS (6)
  1. CLOZAPINE [Suspect]
     Active Substance: CLOZAPINE
     Indication: Schizophrenia
     Dosage: UNK
     Dates: start: 20090317
  2. CLOZAPINE [Suspect]
     Active Substance: CLOZAPINE
     Indication: Schizophrenia
     Dosage: 150 MG
     Dates: start: 20120215
  3. CLOZAPINE [Suspect]
     Active Substance: CLOZAPINE
     Dosage: 150 MG, DAILY
  4. CLOZAPINE [Suspect]
     Active Substance: CLOZAPINE
     Dosage: 50MG MANE, 100MG NOCTE
     Route: 048
  5. CARBOPLATIN [Suspect]
     Active Substance: CARBOPLATIN
     Indication: Rectal cancer
     Dosage: 3 WEEKLY
     Route: 042
     Dates: start: 20210913
  6. FLUOROURACIL [Suspect]
     Active Substance: FLUOROURACIL
     Indication: Rectal cancer
     Dosage: 3 WEEKLY
     Route: 042
     Dates: start: 20210913

REACTIONS (12)
  - Metastatic squamous cell carcinoma [Unknown]
  - Neoplasm progression [Unknown]
  - Neutropenia [Recovered/Resolved]
  - Thrombocytopenia [Not Recovered/Not Resolved]
  - Neutrophil count decreased [Unknown]
  - White blood cell count decreased [Not Recovered/Not Resolved]
  - Mean cell volume decreased [Unknown]
  - Mean cell haemoglobin decreased [Unknown]
  - Iron deficiency [Unknown]
  - Thalassaemia minor [Unknown]
  - Haemoglobinopathy [Unknown]
  - Drug monitoring procedure incorrectly performed [Unknown]

NARRATIVE: CASE EVENT DATE: 20191209
